FAERS Safety Report 19222576 (Version 1)
Quarter: 2021Q2

REPORT INFORMATION
  Report Type: Spontaneous
  Country: US (occurrence: US)
  Receive Date: 20210506
  Receipt Date: 20210506
  Transmission Date: 20210717
  Serious: Yes (Hospitalization)
  Sender: FDA-Public Use
  Company Number: None

PATIENT
  Age: 46 Year
  Sex: Female
  Weight: 97.8 kg

DRUGS (11)
  1. CHOLECALCIFEROL [Concomitant]
     Active Substance: CHOLECALCIFEROL
  2. OMEPRAZOLE. [Concomitant]
     Active Substance: OMEPRAZOLE
  3. FOLIC ACID. [Concomitant]
     Active Substance: FOLIC ACID
  4. ENTYVIO [Suspect]
     Active Substance: VEDOLIZUMAB
  5. LEVOTHYROXINE. [Concomitant]
     Active Substance: LEVOTHYROXINE
  6. ONDANSETRON [Concomitant]
     Active Substance: ONDANSETRON
  7. COENZYME Q10 [Concomitant]
     Active Substance: DIETARY SUPPLEMENT\UBIDECARENONE
  8. ENTYVIO [Concomitant]
     Active Substance: VEDOLIZUMAB
  9. MESALAMINE. [Concomitant]
     Active Substance: MESALAMINE
  10. MERCAPTOPURINE. [Concomitant]
     Active Substance: MERCAPTOPURINE
  11. METOCLOPRAMIDE HCI [Concomitant]

REACTIONS (11)
  - Crohn^s disease [None]
  - Hypotension [None]
  - Electrolyte imbalance [None]
  - Nausea [None]
  - Abdominal pain [None]
  - Leukocytosis [None]
  - Diarrhoea [None]
  - Clostridium difficile infection [None]
  - Vomiting [None]
  - Colitis [None]
  - Weight decreased [None]

NARRATIVE: CASE EVENT DATE: 20191025
